FAERS Safety Report 4345273-9 (Version None)
Quarter: 2004Q2

REPORT INFORMATION
  Report Type: 
  Country: None (occurrence: None)
  Receive Date: 20040420
  Receipt Date: 20040407
  Transmission Date: 20050107
  Serious: Yes (Death, Hospitalization)
  Sender: FDA-Public Use
  Company Number: 2004024148

PATIENT
  Age: 27 Year
  Sex: Male

DRUGS (8)
  1. VORICONAZOLE (VORICONAZOLE) [Suspect]
     Indication: ASPERGILLOSIS
     Dosage: 4 MG/KG (BID), INTRAVENOUS
     Route: 042
  2. MICAFUNGIN (MICAFUNGIN) [Suspect]
     Indication: ASPERGILLOSIS
     Dosage: 200 MG, INTRAVENOUS
     Route: 042
  3. AMPHOTERICIN B [Suspect]
     Indication: ASPERGILLOSIS
     Dosage: INTRAVENOUS
     Route: 042
  4. VANCOMYCIN [Concomitant]
  5. CEFEPIME (CEFEPIME) [Concomitant]
  6. CYCLOSPORINE [Concomitant]
  7. MEPREDNISONE (MEPREDNISONE) [Concomitant]
  8. GANCICLOVIR SODIUM [Concomitant]

REACTIONS (6)
  - BRONCHOPULMONARY ASPERGILLOSIS [None]
  - EOSINOPHILIA [None]
  - GRAFT VERSUS HOST DISEASE [None]
  - LEUKOCYTOSIS [None]
  - PYREXIA [None]
  - RENAL IMPAIRMENT [None]
